FAERS Safety Report 4890695-0 (Version None)
Quarter: 2006Q1

REPORT INFORMATION
  Report Type: 
  Country: None (occurrence: None)
  Receive Date: 20060125
  Receipt Date: 20020418
  Transmission Date: 20060701
  Serious: Yes (Other)
  Sender: FDA-Public Use
  Company Number: US-BRISTOL-MYERS SQUIBB COMPANY-11834819

PATIENT
  Age: 37 Year
  Sex: Female

DRUGS (6)
  1. STADOL [Suspect]
     Indication: HEADACHE
     Route: 045
     Dates: start: 19940412, end: 19980501
  2. CARISOPRODOL [Concomitant]
  3. OXYCODONE HCL + ACETAMINOPHEN [Concomitant]
  4. HYDROCODONE + ACETAMINOPHEN [Concomitant]
  5. METHYLPREDNISOLONE [Concomitant]
  6. BUTALBITAL + CAFFEINE + ACETAMINOPHEN [Concomitant]

REACTIONS (2)
  - DEPENDENCE [None]
  - PREGNANCY [None]
